FAERS Safety Report 9095957 (Version 1)
Quarter: 2013Q1

REPORT INFORMATION
  Report Type: Report from Study
  Country: KR (occurrence: KR)
  Receive Date: 20130206
  Receipt Date: 20130206
  Transmission Date: 20140127
  Serious: Yes (Hospitalization, Other)
  Sender: FDA-Public Use
  Company Number: KR-PFIZER INC-2013041201

PATIENT
  Sex: 0

DRUGS (9)
  1. SOLU-MEDROL [Suspect]
     Indication: IMMUNOSUPPRESSION
     Dosage: 5 MG/KG, 2X/DAY
     Route: 042
  2. SOLU-MEDROL [Suspect]
     Dosage: 4 MG/KG, 1X/DAY
     Route: 042
  3. SOLU-MEDROL [Suspect]
     Dosage: 2 MG/KG, 1X/DAY
     Route: 042
  4. PROGRAF [Suspect]
     Indication: IMMUNOSUPPRESSION
  5. CELLCEPT [Suspect]
     Indication: IMMUNOSUPPRESSION
     Dosage: 750 MG, 2X/DAY
  6. CELLCEPT [Suspect]
     Dosage: 500 MG, 2X/DAY
  7. PRANDIN [Suspect]
     Indication: IMMUNOSUPPRESSION
     Dosage: 0.3 MG/KG, DAILY
     Route: 048
  8. PRANDIN [Suspect]
     Dosage: 5 MG/ DAY
  9. MABTHERA [Concomitant]
     Indication: PROPHYLAXIS

REACTIONS (2)
  - Pneumocystis jirovecii pneumonia [Recovered/Resolved]
  - Pyelonephritis acute [Unknown]
